FAERS Safety Report 5518796-4 (Version None)
Quarter: 2007Q4

REPORT INFORMATION
  Report Type: 
  Country: None (occurrence: None)
  Receive Date: 20071115
  Receipt Date: 20071107
  Transmission Date: 20080405
  Serious: Yes (Death)
  Sender: FDA-Public Use
  Company Number: IT-ABBOTT-07P-083-0423362-00

PATIENT
  Age: 69 Year
  Sex: Male

DRUGS (5)
  1. SEVOFLURANE [Suspect]
     Indication: MAINTENANCE OF ANAESTHESIA
     Dosage: TOTAL FLOW OF 5 LITER/M
  2. SEVOFLURANE [Suspect]
     Indication: GENERAL ANAESTHESIA
  3. OXYGEN [Concomitant]
     Indication: MAINTENANCE OF ANAESTHESIA
     Dosage: TOTAL FLOW OF 5 LITER/M
  4. THIOPENTAL SODIUM [Concomitant]
     Indication: INTUBATION
  5. SUCCINYLCHOLINE CHLORIDE [Concomitant]
     Indication: INTUBATION

REACTIONS (3)
  - ACUTE HEPATIC FAILURE [None]
  - HEPATIC NECROSIS [None]
  - SHOCK [None]
